FAERS Safety Report 7392630-2 (Version None)
Quarter: 2011Q2

REPORT INFORMATION
  Report Type: 
  Country: None (occurrence: None)
  Receive Date: 20110404
  Receipt Date: 20110331
  Transmission Date: 20111010
  Serious: Yes (Hospitalization, Other)
  Sender: FDA-Public Use
  Company Number: JP-ABBOTT-11P-087-0695472-00

PATIENT
  Sex: Female
  Weight: 50.5 kg

DRUGS (10)
  1. HUMIRA [Suspect]
     Indication: RHEUMATOID ARTHRITIS
     Route: 058
     Dates: start: 20100428, end: 20100707
  2. METHOTREXATE [Suspect]
     Indication: PRODUCT USED FOR UNKNOWN INDICATION
     Route: 048
     Dates: start: 20090501, end: 20090901
  3. SALAZOSULFAPYRIDINE [Concomitant]
     Indication: RHEUMATOID ARTHRITIS
     Dosage: 3 GRAM DAILY
     Route: 048
     Dates: end: 20090901
  4. PYRIDOXAL PHOSPHATE HYDRATE [Concomitant]
     Indication: VITAMIN B6 DEFICIENCY
     Dosage: 30 MG DAILY DOSE
     Route: 048
     Dates: start: 20100929, end: 20101027
  5. METHOTREXATE [Suspect]
     Route: 048
     Dates: start: 20091125
  6. SALAZOSULFAPYRIDINE [Concomitant]
     Dosage: 1 GRAM DAILY DOSE
     Route: 048
     Dates: start: 20091125, end: 20091222
  7. HUMIRA [Suspect]
     Route: 058
     Dates: start: 20100804, end: 20101208
  8. METHOTREXATE [Suspect]
     Route: 048
     Dates: start: 20091216
  9. ISONIAZID [Concomitant]
     Indication: PULMONARY TUBERCULOSIS
     Dosage: 300 MG DAILY DOSE
     Route: 048
     Dates: start: 20100224, end: 20101029
  10. INFLUENZA VACCINE [Concomitant]
     Indication: PRODUCT USED FOR UNKNOWN INDICATION
     Dates: start: 20101101, end: 20101101

REACTIONS (4)
  - BLOOD CREATININE INCREASED [None]
  - INTERSTITIAL LUNG DISEASE [None]
  - PNEUMOCYSTIS JIROVECI PNEUMONIA [None]
  - NASOPHARYNGITIS [None]
